FAERS Safety Report 6998096-6 (Version None)
Quarter: 2010Q3

REPORT INFORMATION
  Report Type: 
  Country: None (occurrence: None)
  Receive Date: 20100920
  Receipt Date: 20100604
  Transmission Date: 20110219
  Serious: No
  Sender: FDA-Public Use
  Company Number: US-ASTRAZENECA-2010SE27972

PATIENT
  Age: 50 Year
  Sex: Male
  Weight: 112.2 kg

DRUGS (9)
  1. SEROQUEL [Suspect]
     Dosage: 25-100 MG
     Route: 048
     Dates: start: 20030121
  2. LISINOPRIL [Concomitant]
     Route: 048
     Dates: start: 20050101
  3. LIPITOR [Concomitant]
     Dosage: 1/2 TABLET DAILY
     Route: 048
     Dates: start: 20050101
  4. HALOPERIDOL [Concomitant]
     Route: 048
     Dates: start: 20030121
  5. WELLBUTRIN SR [Concomitant]
     Dosage: 150-400 MG
     Route: 048
     Dates: start: 20030121
  6. REMERON [Concomitant]
     Dosage: 15-30 MG
     Dates: start: 20050101
  7. ABILIFY [Concomitant]
     Dates: end: 20050801
  8. TOPROL-XL [Concomitant]
     Dates: start: 20030404
  9. ZOLOFT [Concomitant]
     Dates: start: 20030519

REACTIONS (11)
  - DIABETES MELLITUS [None]
  - DIABETES MELLITUS INADEQUATE CONTROL [None]
  - ESSENTIAL HYPERTENSION [None]
  - INSOMNIA [None]
  - MAJOR DEPRESSION [None]
  - MASS [None]
  - MIXED HYPERLIPIDAEMIA [None]
  - MUSCULOSKELETAL PAIN [None]
  - SCHIZOAFFECTIVE DISORDER [None]
  - SCHIZOPHRENIA [None]
  - SOCIAL PHOBIA [None]
